FAERS Safety Report 4628649-1 (Version None)
Quarter: 2005Q2

REPORT INFORMATION
  Report Type: 
  Country: None (occurrence: None)
  Receive Date: 20050404
  Receipt Date: 20050321
  Transmission Date: 20051028
  Serious: Yes (Death)
  Sender: FDA-Public Use
  Company Number: B0375789A

PATIENT
  Sex: 0

DRUGS (2)
  1. MYLERAN [Suspect]
     Dosage: 3.2 MG/KG/SINGLE DOSE / INTRAVENOUS
     Route: 042
  2. FLUDARABINE PHOSPHATE [Suspect]

REACTIONS (1)
  - INFECTION [None]
